FAERS Safety Report 16160178 (Version 2)
Quarter: 2019Q2

REPORT INFORMATION
  Report Type: Spontaneous
  Country: US (occurrence: US)
  Receive Date: 20190404
  Receipt Date: 20190413
  Transmission Date: 20190711
  Serious: No
  Sender: FDA-Public Use
  Company Number: US-009507513-1904USA002318

PATIENT
  Age: 43 Year
  Sex: Female
  Weight: 56.69 kg

DRUGS (2)
  1. NEXPLANON [Suspect]
     Active Substance: ETONOGESTREL
     Dosage: 1 ROD. ROUTE: 10 CENTIMETERSOUT AND 2 AND A HALF CENTIMETERS DOWN FROM MUSCLE GROOVE
     Dates: start: 20190319
  2. NEXPLANON [Suspect]
     Active Substance: ETONOGESTREL
     Indication: CONTRACEPTION
     Dosage: 1 ROD, EVERY THREE YEARS. ROUTE: 10 CENTIMETERSOUT AND 2 AND A HALF CENTIMETERS DOWN FROM MUSCLE GRO
     Route: 059
     Dates: start: 20190319

REACTIONS (5)
  - Device difficult to use [Recovered/Resolved]
  - No adverse event [Unknown]
  - Product complaint [Unknown]
  - Device expulsion [Recovered/Resolved]
  - Complication of device insertion [Recovered/Resolved]

NARRATIVE: CASE EVENT DATE: 20190319
